FAERS Safety Report 5198693-7 (Version None)
Quarter: 2007Q1

REPORT INFORMATION
  Report Type: 
  Country: None (occurrence: None)
  Receive Date: 20070104
  Receipt Date: 20061228
  Transmission Date: 20070707
  Serious: Yes (Hospitalization, Disabling)
  Sender: FDA-Public Use
  Company Number: 2006UW19872

PATIENT
  Age: 68 Year
  Sex: Female
  Weight: 49.1 kg

DRUGS (9)
  1. CRESTOR [Suspect]
     Indication: HYPERCHOLESTEROLAEMIA
     Route: 048
     Dates: start: 20040101
  2. CRESTOR [Suspect]
     Route: 048
     Dates: start: 20060714, end: 20060717
  3. XANAX [Concomitant]
  4. METFORMIN HCL [Concomitant]
  5. COZAAR [Concomitant]
  6. KLONOPIN [Concomitant]
  7. PREVACID [Concomitant]
  8. TOPROL-XL [Concomitant]
     Route: 048
  9. GLIPIZIDE [Concomitant]

REACTIONS (4)
  - ARTHRALGIA [None]
  - DERMATOMYOSITIS [None]
  - RASH [None]
  - SKIN SWELLING [None]
